FAERS Safety Report 15531895 (Version 1)
Quarter: 2018Q4

REPORT INFORMATION
  Report Type: Spontaneous
  Country: JP (occurrence: JP)
  Receive Date: 20181019
  Receipt Date: 20181019
  Transmission Date: 20190205
  Serious: Yes (Other)
  Sender: FDA-Public Use
  Company Number: JP-TEVA-2018-JP-964464

PATIENT
  Age: 43 Year
  Sex: Female

DRUGS (3)
  1. CYLOCIDE N INJECTION 400MG [Concomitant]
  2. AMNOLAKE TABLETS 2MG [Concomitant]
  3. TRISENOX [Suspect]
     Active Substance: ARSENIC TRIOXIDE
     Indication: ACUTE PROMYELOCYTIC LEUKAEMIA
     Route: 065

REACTIONS (2)
  - Electrocardiogram QT prolonged [Unknown]
  - Supraventricular extrasystoles [Unknown]
